FAERS Safety Report 8519921 (Version 2)
Quarter: 2012Q4

REPORT INFORMATION
  Report Type: 
  Country: US (occurrence: US)
  Receive Date: 20120418
  Receipt Date: 20121120
  Transmission Date: 20130627
  Serious: No
  Sender: FDA-Public Use
  Company Number: US-ASTRAZENECA-2011SE74065

PATIENT
  Age: 80 Year
  Sex: Male

DRUGS (9)
  1. NEXIUM [Suspect]
     Route: 048
  2. ZESTRIL [Suspect]
     Dosage: GENERIC FORM
     Route: 048
  3. TOPROL XL [Suspect]
     Route: 048
  4. DEXILANT [Concomitant]
  5. ASA [Concomitant]
  6. FOLIC ACID [Concomitant]
  7. VITAMIN D [Concomitant]
     Dosage: 1000 IU
  8. LASIX [Concomitant]
  9. B12 [Concomitant]
     Dosage: 1000 U
     Route: 058

REACTIONS (5)
  - Hypertension [Unknown]
  - Hyponatraemia [Unknown]
  - Agitation [Unknown]
  - Depression [Unknown]
  - Drug hypersensitivity [Unknown]
